FAERS Safety Report 9310543 (Version 2)
Quarter: 2013Q2

REPORT INFORMATION
  Report Type: Spontaneous
  Country: JP (occurrence: JP)
  Receive Date: 20130527
  Receipt Date: 20130605
  Transmission Date: 20140414
  Serious: Yes (Hospitalization, Other)
  Sender: FDA-Public Use
  Company Number: JP-RANBAXY-2013RR-69335

PATIENT
  Age: 31 Year
  Sex: Male

DRUGS (3)
  1. LOSARTAN/HYDROCHLOROTHIAZIDE [Suspect]
     Indication: ESSENTIAL HYPERTENSION
     Dosage: UNK
     Route: 065
  2. EPLERENONE [Interacting]
     Indication: ESSENTIAL HYPERTENSION
     Dosage: 50 MG
     Route: 065
  3. DOXAZOSIN [Concomitant]
     Indication: ESSENTIAL HYPERTENSION
     Dosage: 1 MG, UNK
     Route: 065

REACTIONS (7)
  - Hyponatraemia [Recovering/Resolving]
  - Dehydration [Recovered/Resolved]
  - Heat stroke [Recovered/Resolved]
  - Rhabdomyolysis [Recovered/Resolved]
  - Renal failure [Recovered/Resolved]
  - Coagulopathy [Recovered/Resolved]
  - Drug interaction [Recovered/Resolved]
